FAERS Safety Report 15151808 (Version 1)
Quarter: 2018Q3

REPORT INFORMATION
  Report Type: Spontaneous
  Country: US (occurrence: US)
  Receive Date: 20180716
  Receipt Date: 20180716
  Transmission Date: 20181010
  Serious: Yes (Hospitalization)
  Sender: FDA-Public Use
  Company Number: US-CELGENEUS-USA-20180704047

PATIENT
  Sex: Female

DRUGS (2)
  1. DEXAMETHASONE. [Concomitant]
     Active Substance: DEXAMETHASONE
     Indication: PRODUCT USED FOR UNKNOWN INDICATION
     Route: 065
  2. POMALYST [Suspect]
     Active Substance: POMALIDOMIDE
     Indication: 5Q MINUS SYNDROME
     Dosage: 4 MILLIGRAM
     Route: 048
     Dates: start: 20170414

REACTIONS (4)
  - Swelling [Unknown]
  - Vomiting [Unknown]
  - Nausea [Unknown]
  - Full blood count decreased [Unknown]
